FAERS Safety Report 4990021-2 (Version None)
Quarter: 2006Q2

REPORT INFORMATION
  Report Type: 
  Country: None (occurrence: None)
  Receive Date: 20060427
  Receipt Date: 20060417
  Transmission Date: 20061013
  Serious: Yes (Hospitalization, Other)
  Sender: FDA-Public Use
  Company Number: 200610616GDS

PATIENT
  Age: 30 Year
  Sex: Female
  Weight: 53.5 kg

DRUGS (2)
  1. CIPRO [Suspect]
     Indication: CROHN'S DISEASE
     Dosage: 1000 MG, TOTAL DAILY, ORAL
     Route: 048
     Dates: start: 20050101, end: 20050904
  2. YASMIN [Suspect]
     Indication: MENSTRUATION IRREGULAR
     Dosage: QD, ORAL
     Route: 048
     Dates: start: 20041101, end: 20050904

REACTIONS (4)
  - BLOOD CREATININE INCREASED [None]
  - JOINT SWELLING [None]
  - RENAL TUBULAR NECROSIS [None]
  - URINARY TRACT INFECTION [None]
